FAERS Safety Report 16949318 (Version 1)
Quarter: 2019Q4

REPORT INFORMATION
  Report Type: Other
  Country: RO (occurrence: RO)
  Receive Date: 20191023
  Receipt Date: 20191023
  Transmission Date: 20200122
  Serious: Yes (Other)
  Sender: FDA-Public Use
  Company Number: RO-CELLTRION INC.-2019RO025719

PATIENT

DRUGS (6)
  1. METHOTREXATE. [Concomitant]
     Active Substance: METHOTREXATE
     Indication: RHEUMATOID ARTHRITIS
     Dosage: 7.5 MG, 1/WEEK
     Route: 058
     Dates: start: 20100621
  2. SOLU-MEDROL [Concomitant]
     Active Substance: METHYLPREDNISOLONE SODIUM SUCCINATE
  3. HYDROXYCHLOROQUINE [Concomitant]
     Active Substance: HYDROXYCHLOROQUINE
     Indication: RHEUMATOID ARTHRITIS
     Dosage: 200 MG PER DAY
     Route: 048
     Dates: start: 20130324
  4. INSUMAN RAPID [Concomitant]
     Active Substance: INSULIN HUMAN
     Indication: TYPE 2 DIABETES MELLITUS
     Dosage: 51 IU PER DAY
     Route: 058
  5. METFORMIN [Concomitant]
     Active Substance: METFORMIN HYDROCHLORIDE
     Indication: TYPE 2 DIABETES MELLITUS
     Dosage: 1000 MG, BID
     Route: 048
     Dates: start: 20140923
  6. RITUXIMAB (UNKNOWN) [Suspect]
     Active Substance: RITUXIMAB
     Indication: RHEUMATOID ARTHRITIS
     Dosage: TWO VIALS EVERY TWO WEEKS AND REPEAT TREATMENT AT SIX MONTHS
     Dates: start: 20141205, end: 20181214

REACTIONS (2)
  - Carcinoembryonic antigen increased [Not Recovered/Not Resolved]
  - Adrenal adenoma [Not Recovered/Not Resolved]

NARRATIVE: CASE EVENT DATE: 20190610
